FAERS Safety Report 7867053-X (Version None)
Quarter: 2011Q4

REPORT INFORMATION
  Report Type: 
  Country: None (occurrence: None)
  Receive Date: 20111028
  Receipt Date: 20111019
  Transmission Date: 20120403
  Serious: Yes (Hospitalization)
  Sender: FDA-Public Use
  Company Number: US-JNJFOC-20111008837

PATIENT
  Sex: Female
  Weight: 81.65 kg

DRUGS (2)
  1. QUESTRAN [Concomitant]
     Indication: CROHN'S DISEASE
     Dosage: DOSE:1 PACKET
     Route: 048
     Dates: start: 20090901
  2. REMICADE [Suspect]
     Indication: CROHN'S DISEASE
     Route: 042
     Dates: end: 20090101

REACTIONS (2)
  - ANKYLOSING SPONDYLITIS [None]
  - CROHN'S DISEASE [None]
